FAERS Safety Report 6632717-2 (Version None)
Quarter: 2010Q1

REPORT INFORMATION
  Report Type: 
  Country: None (occurrence: None)
  Receive Date: 20100312
  Receipt Date: 20100301
  Transmission Date: 20100710
  Serious: Yes (Hospitalization)
  Sender: FDA-Public Use
  Company Number: FR-ELI_LILLY_AND_COMPANY-FR201001005001

PATIENT
  Sex: Male

DRUGS (2)
  1. FORTEO [Suspect]
     Indication: OSTEOPOROTIC FRACTURE
     Dosage: 20 UG, DAILY (1/D)
     Route: 058
     Dates: start: 20090226, end: 20100225
  2. LAMALINE [Concomitant]
     Indication: PAIN
     Dosage: 6 D/F, DAILY (1/D)
     Route: 048
     Dates: start: 20100225

REACTIONS (1)
  - BLADDER TRANSITIONAL CELL CARCINOMA [None]
